FAERS Safety Report 18925749 (Version 1)
Quarter: 2021Q1

REPORT INFORMATION
  Report Type: Spontaneous
  Country: AU (occurrence: AU)
  Receive Date: 20210222
  Receipt Date: 20210222
  Transmission Date: 20210420
  Serious: Yes (Life-Threatening, Other)
  Sender: FDA-Public Use
  Company Number: AU-PURDUE-USA-2021-0215349

PATIENT
  Age: 65 Year
  Sex: Female

DRUGS (9)
  1. NON?PMN BUPRENORPHINE [Suspect]
     Active Substance: BUPRENORPHINE
     Dosage: 4 MG, SINGLE [30 HOURS AFTER ADMISSION]
     Route: 060
  2. NON?PMN BUPRENORPHINE [Suspect]
     Active Substance: BUPRENORPHINE
     Dosage: 2 MG, SINGLE [32 HOURS AFTER ADMISSION]
     Route: 060
  3. DIAZEPAM. [Suspect]
     Active Substance: DIAZEPAM
     Indication: ANXIETY DISORDER
     Dosage: UNK
     Route: 065
  4. NON?PMN BUPRENORPHINE [Suspect]
     Active Substance: BUPRENORPHINE
     Indication: ANXIETY DISORDER
     Dosage: UP TO 32 MG OVER THE SUBSEQUENT WEEK
     Route: 060
  5. KETAMINE [Suspect]
     Active Substance: KETAMINE
     Indication: PAIN
     Dosage: 2 MG/HR, UNK
     Route: 042
  6. NON?PMN BUPRENORPHINE [Suspect]
     Active Substance: BUPRENORPHINE
     Dosage: 6 MG [102 HOURS AFTER ADMISSION]
     Route: 060
  7. NON?PMN BUPRENORPHINE [Suspect]
     Active Substance: BUPRENORPHINE
     Dosage: 2 MG, SINGLE [34 HOURS AFTER ADMISSION]
     Route: 060
  8. DIAZEPAM. [Suspect]
     Active Substance: DIAZEPAM
     Indication: PAIN
     Dosage: 10 MG, TID
     Route: 065
  9. KETAMINE [Suspect]
     Active Substance: KETAMINE
     Indication: ANXIETY DISORDER
     Dosage: INCREASED UP TO 24 MG/HR OVER 2 DAYS
     Route: 042

REACTIONS (10)
  - Sedation complication [Recovering/Resolving]
  - Troponin increased [Unknown]
  - Depressed level of consciousness [Recovering/Resolving]
  - Stress cardiomyopathy [Recovering/Resolving]
  - Drug withdrawal syndrome [Unknown]
  - Blood pressure increased [Unknown]
  - Heart rate increased [Unknown]
  - Dyspnoea [Unknown]
  - Oxygen saturation decreased [Unknown]
  - Vomiting [Unknown]
